FAERS Safety Report 22151970 (Version 1)
Quarter: 2023Q1

REPORT INFORMATION
  Report Type: Spontaneous
  Country: US (occurrence: US)
  Receive Date: 20230329
  Receipt Date: 20230329
  Transmission Date: 20230417
  Serious: Yes (Other)
  Sender: FDA-Public Use
  Company Number: US-ViiV Healthcare Limited-US2023GSK046897

PATIENT

DRUGS (3)
  1. CABOTEGRAVIR\RILPIVIRINE [Suspect]
     Active Substance: CABOTEGRAVIR\RILPIVIRINE
     Indication: HIV infection
     Dosage: MONTHLY
     Route: 042
  2. CABOTEGRAVIR\RILPIVIRINE [Suspect]
     Active Substance: CABOTEGRAVIR\RILPIVIRINE
     Dosage: BIMONTHLY
     Route: 042
  3. CABOTEGRAVIR\RILPIVIRINE [Suspect]
     Active Substance: CABOTEGRAVIR\RILPIVIRINE

REACTIONS (3)
  - HIV viraemia [Unknown]
  - Virologic failure [Unknown]
  - Injection site pain [Unknown]
